FAERS Safety Report 5071045-6 (Version None)
Quarter: 2006Q3

REPORT INFORMATION
  Report Type: 
  Country: None (occurrence: None)
  Receive Date: 20060804
  Receipt Date: 20060111
  Transmission Date: 20061208
  Serious: No
  Sender: FDA-Public Use
  Company Number: US-GLAXOSMITHKLINE-A0588737A

PATIENT
  Age: 56 Year
  Sex: Female

DRUGS (2)
  1. NICORETTE (MINT) [Suspect]
     Dates: start: 20060103, end: 20060103
  2. ACIPHEX [Concomitant]

REACTIONS (2)
  - DYSPEPSIA [None]
  - RETCHING [None]
